FAERS Safety Report 15133843 (Version 1)
Quarter: 2018Q3

REPORT INFORMATION
  Report Type: Spontaneous
  Country: US (occurrence: US)
  Receive Date: 20180615
  Receipt Date: 20180615
  Transmission Date: 20181010
  Serious: No
  Sender: FDA-Public Use
  Company Number: None

PATIENT
  Age: 34 Year
  Sex: Male

DRUGS (4)
  1. UCERIS [Concomitant]
     Active Substance: BUDESONIDE
  2. APRISO [Concomitant]
     Active Substance: MESALAMINE
  3. AZATHIOPRINE. [Concomitant]
     Active Substance: AZATHIOPRINE
  4. HUMIRA [Suspect]
     Active Substance: ADALIMUMAB
     Indication: COLITIS
     Route: 058
     Dates: start: 20160906

REACTIONS (2)
  - Drug dose omission [None]
  - Device malfunction [None]

NARRATIVE: CASE EVENT DATE: 20180608
